FAERS Safety Report 20850166 (Version 1)
Quarter: 2022Q2

REPORT INFORMATION
  Report Type: Spontaneous
  Country: US (occurrence: None)
  Receive Date: 20220518
  Receipt Date: 20220518
  Transmission Date: 20220720
  Serious: No
  Sender: FDA-Public Use
  Company Number: None

PATIENT
  Age: 29 Year
  Sex: Male

DRUGS (1)
  1. LORAZEPAM [Suspect]
     Active Substance: LORAZEPAM
     Dosage: OTHER FREQUENCY : BID PRN;?
     Route: 048

REACTIONS (3)
  - Withdrawal syndrome [None]
  - Illness [None]
  - Feeling abnormal [None]

NARRATIVE: CASE EVENT DATE: 20220516
